FAERS Safety Report 11376902 (Version 9)
Quarter: 2015Q4

REPORT INFORMATION
  Report Type: Report from Study
  Country: BE (occurrence: BE)
  Receive Date: 20150813
  Receipt Date: 20151118
  Transmission Date: 20160304
  Serious: Yes (Death, Hospitalization)
  Sender: FDA-Public Use
  Company Number: BE-ABBVIE-15P-013-1443509-00

PATIENT
  Sex: Female

DRUGS (21)
  1. DUODOPA [Suspect]
     Active Substance: CARBIDOPA\LEVODOPA
     Indication: PARKINSON^S DISEASE
     Dosage: AM=9.6ML; CD=2.2ML/HR DURING 16HRS; ED=1ML
     Route: 050
     Dates: start: 20140929
  2. DUODOPA [Suspect]
     Active Substance: CARBIDOPA\LEVODOPA
     Dosage: DOSES CONTINUOUSLY MONITORED AND ADAPTED.
     Route: 050
     Dates: end: 20150705
  3. DUODOPA [Suspect]
     Active Substance: CARBIDOPA\LEVODOPA
     Dosage: AM=8ML; CD=2.9ML/HR DURING 16HRS; ED=1.5ML
     Route: 050
     Dates: end: 20150810
  4. MACROGOL [Concomitant]
     Active Substance: POLYETHYLENE GLYCOLS
     Indication: PRODUCT USED FOR UNKNOWN INDICATION
     Route: 065
  5. DUODOPA [Suspect]
     Active Substance: CARBIDOPA\LEVODOPA
     Dosage: AM=8.5ML; CD=3.3ML/HR DURING 16 HRS; ED=1.5ML
     Route: 050
     Dates: start: 20150926, end: 20150929
  6. ZANTAC [Concomitant]
     Active Substance: RANITIDINE HYDROCHLORIDE
     Indication: PRODUCT USED FOR UNKNOWN INDICATION
     Route: 065
  7. TRAZODONE [Concomitant]
     Active Substance: TRAZODONE HYDROCHLORIDE
     Indication: PRODUCT USED FOR UNKNOWN INDICATION
     Route: 065
  8. ASAFLOW [Concomitant]
     Active Substance: ASPIRIN
     Indication: PRODUCT USED FOR UNKNOWN INDICATION
     Route: 065
  9. DUODOPA [Suspect]
     Active Substance: CARBIDOPA\LEVODOPA
     Dosage: AM=8ML; CD=2.9ML/HR DURING 16HRS; ED=1.5ML
     Route: 050
     Dates: start: 20150705
  10. PANTOPRAZOL [Concomitant]
     Active Substance: PANTOPRAZOLE SODIUM
     Indication: PRODUCT USED FOR UNKNOWN INDICATION
     Route: 065
  11. DAFALGAN [Concomitant]
     Active Substance: ACETAMINOPHEN
     Indication: PRODUCT USED FOR UNKNOWN INDICATION
     Dosage: TWO UP TO THREE TIMES /DAY
     Route: 065
  12. DUODOPA [Suspect]
     Active Substance: CARBIDOPA\LEVODOPA
     Dosage: AM=8.5ML; CD= 3.5ML/HR DURING 16 HRS; ED=1.5ML
     Route: 050
     Dates: start: 20150929, end: 20151005
  13. CELEBREX [Concomitant]
     Active Substance: CELECOXIB
     Indication: PRODUCT USED FOR UNKNOWN INDICATION
     Route: 065
  14. STALEVO [Concomitant]
     Active Substance: CARBIDOPA\ENTACAPONE\LEVODOPA
     Indication: PRODUCT USED FOR UNKNOWN INDICATION
     Dosage: FORM STRENGTH: 200MG/50MG/200MG
     Route: 065
  15. ADALAT [Concomitant]
     Active Substance: NIFEDIPINE
     Indication: PRODUCT USED FOR UNKNOWN INDICATION
     Route: 065
  16. DUODOPA [Suspect]
     Active Substance: CARBIDOPA\LEVODOPA
     Dosage: AM=8.5ML; CD=3.2ML/HR DURING 16HRS; ED=1.5ML
     Route: 050
     Dates: start: 20150914, end: 20150926
  17. DUODOPA [Suspect]
     Active Substance: CARBIDOPA\LEVODOPA
     Dosage: AM=8ML; CD=3ML/HR DURING 16HRS; ED=1.5ML
     Route: 050
     Dates: start: 20150810, end: 20150824
  18. DUODOPA [Suspect]
     Active Substance: CARBIDOPA\LEVODOPA
     Dosage: AM=8ML; CD=3ML/HR DURING 16HRS; ED=1.5ML
     Route: 050
     Dates: start: 20150824, end: 20150914
  19. DUODOPA [Suspect]
     Active Substance: CARBIDOPA\LEVODOPA
     Dosage: AM=8.5ML; CD=3.6ML/HR DURING 16 HRS; ED=1.5ML
     Route: 050
     Dates: start: 20151005
  20. TEVETEN [Concomitant]
     Active Substance: EPROSARTAN MESYLATE
     Indication: PRODUCT USED FOR UNKNOWN INDICATION
     Route: 065
  21. MOTILIUM [Concomitant]
     Active Substance: DOMPERIDONE
     Indication: PRODUCT USED FOR UNKNOWN INDICATION
     Dosage: THREE TIMES / DAY IF NEEDED
     Route: 065

REACTIONS (9)
  - Pain [Unknown]
  - Gait disturbance [Unknown]
  - Mobility decreased [Unknown]
  - Tremor [Recovered/Resolved]
  - Colon cancer metastatic [Fatal]
  - Muscle rigidity [Unknown]
  - General physical health deterioration [Unknown]
  - Incorrect route of drug administration [Recovered/Resolved]
  - Drug ineffective [Unknown]
